FAERS Safety Report 11419703 (Version 1)
Quarter: 2015Q3

REPORT INFORMATION
  Report Type: Report from Study
  Country: AU (occurrence: AU)
  Receive Date: 20150826
  Receipt Date: 20150826
  Transmission Date: 20151125
  Serious: Yes (Hospitalization, Other)
  Sender: FDA-Public Use
  Company Number: AU-UNITED THERAPEUTICS LTD.-UTC-014788

PATIENT
  Age: 37 Year
  Sex: Female
  Weight: 50 kg

DRUGS (9)
  1. UT-15C SR(SUSTAINED-RELEASE TABLET)(TREPROSTINIL DIETHANOLAMINE) [Suspect]
     Active Substance: TREPROSTINIL
     Route: 048
     Dates: start: 20120116
  2. UT-15C SR(SUSTAINED-RELEASE TABLET)(TREPROSTINIL DIETHANOLAMINE) [Suspect]
     Active Substance: TREPROSTINIL
     Indication: PULMONARY ARTERIAL HYPERTENSION
     Route: 048
     Dates: start: 20100628
  3. SILDENAFIL. [Concomitant]
     Active Substance: SILDENAFIL
     Indication: PULMONARY ARTERIAL HYPERTENSION
     Route: 048
  4. FUROSEMIDE. [Concomitant]
     Active Substance: FUROSEMIDE
     Indication: PULMONARY ARTERIAL HYPERTENSION
     Route: 048
  5. TEGRETOL [Concomitant]
     Active Substance: CARBAMAZEPINE
     Indication: EPILEPSY
     Route: 048
  6. UT-15C SR(SUSTAINED-RELEASE TABLET)(TREPROSTINIL DIETHANOLAMINE) [Suspect]
     Active Substance: TREPROSTINIL
     Dosage: 5.8-6.0 MILLIGRAM
     Route: 048
     Dates: start: 20120114, end: 20120114
  7. UT-15C SR(SUSTAINED-RELEASE TABLET)(TREPROSTINIL DIETHANOLAMINE) [Suspect]
     Active Substance: TREPROSTINIL
     Route: 048
     Dates: start: 20120114, end: 20120114
  8. SPIRONOLACTONE. [Concomitant]
     Active Substance: SPIRONOLACTONE
     Indication: PULMONARY ARTERIAL HYPERTENSION
     Route: 048
  9. BOSENTAN [Concomitant]
     Active Substance: BOSENTAN
     Indication: PULMONARY ARTERIAL HYPERTENSION
     Route: 048

REACTIONS (4)
  - Accidental overdose [Recovered/Resolved]
  - Blood glucose decreased [Recovered/Resolved]
  - Cyanosis central [Recovered/Resolved]
  - Dyspnoea [Recovered/Resolved]

NARRATIVE: CASE EVENT DATE: 20120114
